FAERS Safety Report 6468934-4 (Version None)
Quarter: 2009Q4

REPORT INFORMATION
  Report Type: 
  Country: None (occurrence: None)
  Receive Date: 20091203
  Receipt Date: 20081120
  Transmission Date: 20100525
  Serious: Yes (Hospitalization)
  Sender: FDA-Public Use
  Company Number: US-ELI_LILLY_AND_COMPANY-US200603003826

PATIENT
  Sex: Male
  Weight: 136.5 kg

DRUGS (2)
  1. ZYPREXA [Suspect]
     Indication: ANXIETY
     Dosage: 10 MG, UNK
     Dates: start: 20041110, end: 20060506
  2. ZYPREXA [Suspect]
     Dosage: 15 MG, UNK

REACTIONS (5)
  - BLOOD GLUCOSE ABNORMAL [None]
  - CARDIAC DISORDER [None]
  - ENDOCRINE DISORDER [None]
  - TYPE 2 DIABETES MELLITUS [None]
  - VEIN DISORDER [None]
